FAERS Safety Report 7041557-4 (Version None)
Quarter: 2010Q4

REPORT INFORMATION
  Report Type: 
  Country: None (occurrence: None)
  Receive Date: 20101013
  Receipt Date: 20100806
  Transmission Date: 20110411
  Serious: No
  Sender: FDA-Public Use
  Company Number: US-ASTRAZENECA-2010SE36927

PATIENT
  Age: 59 Year
  Sex: Female
  Weight: 51.7 kg

DRUGS (1)
  1. SYMBICORT [Suspect]
     Indication: ASTHMA
     Dosage: 160MCG
     Route: 055
     Dates: start: 20100501

REACTIONS (4)
  - AMNESIA [None]
  - BALANCE DISORDER [None]
  - PERIPHERAL NERVE NEUROSTIMULATION [None]
  - TREMOR [None]
